FAERS Safety Report 11009341 (Version 1)
Quarter: 2015Q2

REPORT INFORMATION
  Report Type: Spontaneous
  Country: US (occurrence: None)
  Receive Date: 20150409
  Receipt Date: 20150409
  Transmission Date: 20150821
  Serious: No
  Sender: FDA-Public Use
  Company Number: None

PATIENT
  Age: 58 Year
  Sex: Male
  Weight: 72.58 kg

DRUGS (2)
  1. MIRVASO [Suspect]
     Active Substance: BRIMONIDINE TARTRATE
     Indication: ROSACEA
     Dosage: 30 GRAM TUBE, ONCE DAILY, APPLIED TO A SURFACE USUALLY THE SKIN
     Dates: start: 20141201, end: 20150301
  2. MIRVASO [Suspect]
     Active Substance: BRIMONIDINE TARTRATE
     Indication: ERYTHEMA
     Dosage: 30 GRAM TUBE, ONCE DAILY, APPLIED TO A SURFACE USUALLY THE SKIN
     Dates: start: 20141201, end: 20150301

REACTIONS (4)
  - Therapeutic reaction time decreased [None]
  - Sunburn [None]
  - Erythema [None]
  - Condition aggravated [None]

NARRATIVE: CASE EVENT DATE: 20150401
